FAERS Safety Report 21129747 (Version 1)
Quarter: 2022Q3

REPORT INFORMATION
  Report Type: Spontaneous
  Country: FI (occurrence: FI)
  Receive Date: 20220726
  Receipt Date: 20220726
  Transmission Date: 20221026
  Serious: No
  Sender: FDA-Public Use
  Company Number: FI-ALKEM LABORATORIES LIMITED-FI-ALKEM-2022-04973

PATIENT
  Age: 36 Year
  Sex: Female

DRUGS (14)
  1. LACOSAMIDE [Suspect]
     Active Substance: LACOSAMIDE
     Indication: Cerebral venous thrombosis
     Dosage: 300 MILLIGRAM
     Route: 065
  2. LACOSAMIDE [Suspect]
     Active Substance: LACOSAMIDE
     Indication: Status epilepticus
  3. LEVETIRACETAM [Suspect]
     Active Substance: LEVETIRACETAM
     Indication: Cerebral venous thrombosis
     Dosage: 1000 MILLIGRAM, BID
     Route: 065
  4. LEVETIRACETAM [Suspect]
     Active Substance: LEVETIRACETAM
     Indication: Status epilepticus
     Dosage: 3000 MILLIGRAM
     Route: 065
  5. ENOXAPARIN [Suspect]
     Active Substance: ENOXAPARIN
     Indication: Cerebral venous thrombosis
     Dosage: 60 MILLIGRAM, BID
     Route: 065
  6. ENOXAPARIN [Suspect]
     Active Substance: ENOXAPARIN
     Indication: Status epilepticus
     Dosage: 40 MILLIGRAM, BID
     Route: 065
  7. DIAZEPAM [Suspect]
     Active Substance: DIAZEPAM
     Indication: Epilepsy
     Dosage: 10 MILLIGRAM
     Route: 065
  8. MIDAZOLAM [Suspect]
     Active Substance: MIDAZOLAM
     Indication: Status epilepticus
     Dosage: UNK
     Route: 065
  9. LORAZEPAM [Suspect]
     Active Substance: LORAZEPAM
     Indication: Status epilepticus
     Dosage: 6 MILLIGRAM
     Route: 065
  10. FOSPHENYTOIN [Suspect]
     Active Substance: FOSPHENYTOIN
     Indication: Status epilepticus
     Dosage: 250 MILLIGRAM, BID
     Route: 065
  11. FOSPHENYTOIN [Suspect]
     Active Substance: FOSPHENYTOIN
     Dosage: 600 MILLIGRAM
     Route: 065
  12. HEPARIN [Concomitant]
     Active Substance: HEPARIN SODIUM
     Indication: Haemorrhage intracranial
     Dosage: UNK
     Route: 042
  13. PROPOFOL [Concomitant]
     Active Substance: PROPOFOL
     Indication: Product used for unknown indication
     Dosage: UNK
     Route: 065
  14. LABETALOL [Concomitant]
     Active Substance: LABETALOL\LABETALOL HYDROCHLORIDE
     Indication: Hypertension
     Dosage: UNK
     Route: 065

REACTIONS (2)
  - Maternal exposure during breast feeding [Unknown]
  - Exposure during pregnancy [Unknown]
